FAERS Safety Report 10243657 (Version 1)
Quarter: 2014Q2

REPORT INFORMATION
  Report Type: Spontaneous
  Country: GB (occurrence: None)
  Receive Date: 20140616
  Receipt Date: 20140616
  Transmission Date: 20141212
  Serious: Yes (Death, Other)
  Sender: FDA-Public Use
  Company Number: 2385529

PATIENT
  Age: 55 Year
  Sex: Male

DRUGS (3)
  1. GEMCITABINE HYDROCHLORIDE [Suspect]
     Indication: PANCREATIC CARCINOMA METASTATIC
     Route: 041
     Dates: start: 201201
  2. PACLITAXEL ALBUMIN [Suspect]
     Indication: PANCREATIC CARCINOMA METASTATIC
     Route: 041
     Dates: start: 201201
  3. CAPECITABINE [Concomitant]

REACTIONS (8)
  - Pancreatic carcinoma [None]
  - Neuropathy peripheral [None]
  - Fatigue [None]
  - Neutropenia [None]
  - Anaemia [None]
  - Nausea [None]
  - Malignant neoplasm progression [None]
  - Performance status decreased [None]
